FAERS Safety Report 8300107-2 (Version None)
Quarter: 2012Q2

REPORT INFORMATION
  Report Type: 
  Country: None (occurrence: None)
  Receive Date: 20120420
  Receipt Date: 20120417
  Transmission Date: 20120825
  Serious: No
  Sender: FDA-Public Use
  Company Number: US-PFIZER INC-2012095372

PATIENT
  Sex: Male
  Weight: 10 kg

DRUGS (2)
  1. GENOTROPIN [Suspect]
     Indication: BODY HEIGHT BELOW NORMAL
     Dosage: 0.4 MG, 1X/DAY
     Dates: start: 20120413
  2. AMOXICILLIN [Concomitant]
     Indication: EAR INFECTION
     Dosage: 5 ML, 2X/DAY
     Route: 048
     Dates: start: 20120401

REACTIONS (5)
  - INFLUENZA [None]
  - PAIN [None]
  - BODY TEMPERATURE INCREASED [None]
  - VOMITING [None]
  - MALAISE [None]
